FAERS Safety Report 10648117 (Version 3)
Quarter: 2014Q4

REPORT INFORMATION
  Report Type: Spontaneous
  Country: US (occurrence: None)
  Receive Date: 20141210
  Receipt Date: 20141229
  Transmission Date: 20150529
  Serious: Yes (Other)
  Sender: FDA-Public Use
  Company Number: 2014US010429

PATIENT
  Age: 75 Year
  Sex: Male
  Weight: 70.3 kg

DRUGS (10)
  1. DUONEB (IPRATROPIUM BROMIDE, SALBUTAMOL SULFATE [Concomitant]
  2. NEXIUM [Concomitant]
     Active Substance: ESOMEPRAZOLE MAGNESIUM
  3. COMBIVENT (IPRATROPIUM BROMIDE, SALBUTAMOL SULFATE) [Concomitant]
  4. TAMSULOSIN (TAMSULOSIN) [Concomitant]
     Active Substance: TAMSULOSIN
  5. ASPIRIN /00002701/ (ACETYLSALICYLIC ACID) [Concomitant]
  6. SPIRIVA (TIOTROPIUM BROMIDE) [Concomitant]
  7. DILTIAZEM (DILTIAZEM) [Concomitant]
  8. MULTI VITAMIN (ASCORBIC ACID, COLECALCIFEROL, NICOTINAMIDE, PANTHENOL, PYRIDOXINE HYDROCHLORIDE, RETINOL PALMITATE, RIBOFLAVIN, THIAMINE HYDROCHLORIDE, TOCOPHERYL ACETATE) [Concomitant]
  9. ELIGARD [Suspect]
     Active Substance: LEUPROLIDE ACETATE
     Indication: PROSTATE CANCER
     Dosage: EVERY 6 MONTHS
     Route: 058
     Dates: start: 20141202
  10. ADVAIR DISKUS [Concomitant]
     Active Substance: FLUTICASONE PROPIONATE\SALMETEROL XINAFOATE

REACTIONS (7)
  - Panic attack [None]
  - Hot flush [None]
  - Fear [None]
  - Throat tightness [None]
  - Apparent death [None]
  - Feeling abnormal [None]
  - Heart rate increased [None]

NARRATIVE: CASE EVENT DATE: 20141202
